FAERS Safety Report 12836071 (Version 1)
Quarter: 2016Q4

REPORT INFORMATION
  Report Type: Report from Study
  Country: DE (occurrence: DE)
  Receive Date: 20161011
  Receipt Date: 20161011
  Transmission Date: 20170207
  Serious: Yes (Death)
  Sender: FDA-Public Use
  Company Number: DE-CELGENEUS-DEU-2016096586

PATIENT
  Age: 71 Year
  Sex: Female

DRUGS (2)
  1. ASA [Suspect]
     Active Substance: ASPIRIN
     Indication: PLASMA CELL MYELOMA
     Route: 048
     Dates: start: 201402
  2. POMALIDOMIDE [Suspect]
     Active Substance: POMALIDOMIDE
     Indication: PLASMA CELL MYELOMA
     Dosage: 4 MILLIGRAM
     Route: 048
     Dates: start: 201402

REACTIONS (4)
  - Death [Fatal]
  - Fatigue [Unknown]
  - Asthenia [Unknown]
  - Swelling face [Unknown]

NARRATIVE: CASE EVENT DATE: 201512
